FAERS Safety Report 5623193-7 (Version None)
Quarter: 2008Q1

REPORT INFORMATION
  Report Type: 
  Country: None (occurrence: None)
  Receive Date: 20080212
  Receipt Date: 20080204
  Transmission Date: 20080703
  Serious: Yes (Other)
  Sender: FDA-Public Use
  Company Number: GB-ROCHE-545451

PATIENT
  Age: 54 Year
  Sex: Female
  Weight: 122.6 kg

DRUGS (10)
  1. ORLISTAT [Suspect]
     Indication: OBESITY
     Route: 048
     Dates: start: 20071018, end: 20071231
  2. MIRTAZAPINE [Concomitant]
     Indication: DEPRESSION
     Route: 048
     Dates: start: 20070930, end: 20071231
  3. SIMVASTATIN [Concomitant]
     Route: 048
  4. ATENOLOL [Concomitant]
     Indication: HYPERTENSION
     Route: 048
  5. MORPHINE SULFATE [Concomitant]
     Indication: ANALGESIA
     Route: 048
     Dates: start: 20050101
  6. OMEPRAZOLE [Concomitant]
     Route: 048
  7. TRAMADOL HCL [Concomitant]
     Indication: ANALGESIA
     Route: 048
  8. DOSULEPIN [Concomitant]
     Indication: FIBROMYALGIA
     Route: 048
     Dates: start: 20060101
  9. RAMIPRIL [Concomitant]
     Indication: HYPERTENSION
     Route: 048
  10. SOLIFENACIN SUCCINATE [Concomitant]
     Indication: BLADDER DISORDER
     Route: 048

REACTIONS (1)
  - SUICIDE ATTEMPT [None]
